FAERS Safety Report 5467687-6 (Version None)
Quarter: 2007Q3

REPORT INFORMATION
  Report Type: 
  Country: None (occurrence: None)
  Receive Date: 20070921
  Receipt Date: 20070905
  Transmission Date: 20080115
  Serious: Yes (Other)
  Sender: FDA-Public Use
  Company Number: 2007RR-09848

PATIENT
  Sex: Female

DRUGS (1)
  1. CEFACLOR [Suspect]

REACTIONS (1)
  - PEMPHIGUS [None]
